FAERS Safety Report 19991198 (Version 4)
Quarter: 2022Q3

REPORT INFORMATION
  Report Type: Spontaneous
  Country: DE (occurrence: DE)
  Receive Date: 20211025
  Receipt Date: 20220907
  Transmission Date: 20221027
  Serious: Yes (Hospitalization, Other)
  Sender: FDA-Public Use
  Company Number: DE-NOVARTISPH-NVSC2021DE242751

PATIENT
  Sex: Male
  Weight: 105 kg

DRUGS (9)
  1. VALSARTAN [Suspect]
     Active Substance: VALSARTAN
     Indication: Hypertension
     Dosage: UNK
     Route: 065
     Dates: start: 2016, end: 2018
  2. VALSARTAN [Suspect]
     Active Substance: VALSARTAN
     Dosage: 320 MG, QD (IN THE MORNING)
     Route: 065
     Dates: start: 20160401, end: 20180816
  3. VALSARTAN [Suspect]
     Active Substance: VALSARTAN
     Indication: Hypertension
     Dosage: 320 MG
     Route: 065
  4. CANDESARTAN [Concomitant]
     Active Substance: CANDESARTAN
     Indication: Product used for unknown indication
     Dosage: 32 MG
     Route: 065
     Dates: start: 20180816, end: 20191015
  5. CANDESARTAN [Concomitant]
     Active Substance: CANDESARTAN
     Dosage: 16 MG
     Route: 065
     Dates: start: 20191016
  6. ATACAND [Concomitant]
     Active Substance: CANDESARTAN CILEXETIL
     Indication: Product used for unknown indication
     Dosage: 1 DOSAGE FORM, QD IN THE MORNING (1-0-0)
     Route: 065
     Dates: end: 201912
  7. NORVASC [Concomitant]
     Active Substance: AMLODIPINE BESYLATE
     Indication: Product used for unknown indication
     Dosage: 1 DOSAGE FORM, QD, IN THE MORNING (1-0-0)
     Route: 065
  8. BUTYLSCOPOLAMINE [Concomitant]
     Active Substance: BUTYLSCOPOLAMINE
     Indication: Product used for unknown indication
     Dosage: 20 MG
     Route: 065
  9. PANTOPRAZOLE [Concomitant]
     Active Substance: PANTOPRAZOLE
     Indication: Product used for unknown indication
     Dosage: 1 DOSAGE FORM, QD, IN THE MORNING (1-0-0)
     Route: 065

REACTIONS (24)
  - Bladder cancer [Unknown]
  - Blood urine present [Unknown]
  - Urethral stenosis [Unknown]
  - Large intestinal haemorrhage [Unknown]
  - Haematuria [Unknown]
  - Haemorrhoids [Unknown]
  - Hypertension [Unknown]
  - Onychomycosis [Unknown]
  - Eczema [Unknown]
  - Somatic symptom disorder [Unknown]
  - Tendon disorder [Unknown]
  - Carpal tunnel syndrome [Unknown]
  - Paraesthesia [Unknown]
  - Coronavirus infection [Unknown]
  - Oropharyngeal pain [Unknown]
  - Gastritis [Unknown]
  - Groin pain [Unknown]
  - Joint injury [Unknown]
  - Pain in extremity [Unknown]
  - Tonsillar hypertrophy [Unknown]
  - Pharyngeal erythema [Unknown]
  - Cough [Recovered/Resolved]
  - Abdominal pain [Unknown]
  - Nausea [Unknown]

NARRATIVE: CASE EVENT DATE: 10190205
